FAERS Safety Report 4861238-2 (Version None)
Quarter: 2005Q4

REPORT INFORMATION
  Report Type: 
  Country: None (occurrence: None)
  Receive Date: 20051220
  Receipt Date: 20051209
  Transmission Date: 20060501
  Serious: Yes (Hospitalization)
  Sender: FDA-Public Use
  Company Number: US-AMGEN-US160905

PATIENT
  Age: 72 Year
  Sex: Male

DRUGS (1)
  1. EPOGEN [Suspect]
     Indication: ANAEMIA

REACTIONS (2)
  - CARDIAC OPERATION [None]
  - HAEMOGLOBIN DECREASED [None]
